FAERS Safety Report 11637829 (Version 1)
Quarter: 2015Q4

REPORT INFORMATION
  Report Type: Spontaneous
  Country: US (occurrence: US)
  Receive Date: 20151016
  Receipt Date: 20151016
  Transmission Date: 20160304
  Serious: Yes (Other)
  Sender: FDA-Public Use
  Company Number: US-PFIZER INC-2015332977

PATIENT
  Sex: Male

DRUGS (1)
  1. PREPARATION H SUPPOSITORY [Suspect]
     Active Substance: COCOA BUTTER\PHENYLEPHRINE HYDROCHLORIDE
     Indication: HAEMORRHOIDS
     Dosage: UNK

REACTIONS (5)
  - Burning sensation [Unknown]
  - Haematochezia [Unknown]
  - Pain [Unknown]
  - Haemorrhage [Unknown]
  - Screaming [Unknown]

NARRATIVE: CASE EVENT DATE: 20151004
